FAERS Safety Report 8504855-0 (Version None)
Quarter: 2012Q2

REPORT INFORMATION
  Report Type: 
  Country: None (occurrence: None)
  Receive Date: 20120405
  Receipt Date: 20100901
  Transmission Date: 20120825
  Serious: Yes (Other)
  Sender: FDA-Public Use
  Company Number: PHHY2010US54591

PATIENT
  Age: 62 Year
  Sex: Female
  Weight: 134 kg

DRUGS (16)
  1. PRAVACHOL (PRAVACHOL) [Concomitant]
  2. DRISDOL [Concomitant]
  3. MELOXICAM [Concomitant]
  4. LISINOPRIL [Concomitant]
  5. VITAMIN B COMPLEX CAP [Concomitant]
  6. AMLODIPINE [Concomitant]
  7. SYNTHROID [Concomitant]
  8. ATENOLOL [Concomitant]
  9. CLARINEX /USA/ (DESLORATADINE) [Concomitant]
  10. CALCIUM D SANDOZ (CALCIUM, COLECALCIFEROL) [Concomitant]
  11. VITAMIN D [Concomitant]
  12. LUMIGAN [Concomitant]
  13. RECLAST [Suspect]
     Indication: OSTEOPOROSIS POSTMENOPAUSAL
     Dosage: 5 MG/ YEAR,INTRAVENOUS
     Route: 042
     Dates: start: 20100805
  14. TRAMADOL HCL [Concomitant]
  15. PRAVASTATIN [Concomitant]
  16. HYDROCHLOROTHIAZIDE [Concomitant]

REACTIONS (20)
  - BLOOD PRESSURE INCREASED [None]
  - DYSPHONIA [None]
  - JOINT STIFFNESS [None]
  - CHILLS [None]
  - PAIN IN EXTREMITY [None]
  - GAIT DISTURBANCE [None]
  - URTICARIA [None]
  - SWELLING [None]
  - PAIN [None]
  - SINUS DISORDER [None]
  - AGEUSIA [None]
  - RHINITIS ALLERGIC [None]
  - ASTHENIA [None]
  - ARTHRALGIA [None]
  - DYSPNOEA [None]
  - HEADACHE [None]
  - PALLOR [None]
  - OEDEMA PERIPHERAL [None]
  - INJECTION SITE PRURITUS [None]
  - IMPAIRED WORK ABILITY [None]
